FAERS Safety Report 8477832-6 (Version None)
Quarter: 2012Q2

REPORT INFORMATION
  Report Type: 
  Country: None (occurrence: None)
  Receive Date: 20120629
  Receipt Date: 20120622
  Transmission Date: 20120825
  Serious: Yes (Other)
  Sender: FDA-Public Use
  Company Number: US-PFIZER INC-2012151217

PATIENT

DRUGS (21)
  1. VENTOLIN HFA [Concomitant]
     Indication: WHEEZING
     Dosage: 90 MCG/ACUTION INHALER, 4X/DAY (INHALE 1-2 PUFFS INTO THE LUNGS EVERY 6 HOURS AS NEEDED)
  2. PHENERGAN HCL [Concomitant]
     Dosage: 25 MG, 4X/DAY (EVERY 6 HOURS AS NEEDED)
     Route: 048
  3. FORTAMET [Concomitant]
     Dosage: 1000 MG, BY MOUTH DAILY WITH BREAKFAST
     Route: 048
  4. CELEXA [Concomitant]
     Dosage: 20 MG, 1X/DAY
     Route: 048
  5. ALLEGRA [Concomitant]
     Dosage: 180 MG, DAILY
     Route: 048
  6. MOTRIN [Concomitant]
     Dosage: 800 MG, 4X/DAY (EVERY 6 HOURS AS NEEDED)
     Route: 048
  7. PRILOSEC [Concomitant]
     Dosage: 20 MG, DAILY
     Route: 048
  8. CRESTOR [Concomitant]
     Dosage: 20 MG, TAKE 1 TABLET EVERY EVENING
     Route: 048
  9. PROVENTIL-HFA [Concomitant]
     Indication: WHEEZING
     Dosage: 90 MCG/ACUTION INHALER, 4X/DAY (INHALE 1-2 PUFFS INTO THE LUNGS EVERY 6 HOURS AS NEEDED)
  10. GLUCOTROL XL [Suspect]
     Dosage: 5 MG, 1X/DAY (24 HR TABLET, TAKE 1 TABLET)
     Route: 048
  11. DIABETA [Concomitant]
     Dosage: 5 MG, DAILY WITH BREAKFAST
     Route: 048
  12. POTASSIUM CHLORIDE [Concomitant]
     Dosage: 10 MEQ, 2X/DAY
     Route: 048
  13. TOPAMAX [Concomitant]
     Dosage: 100 MG, 2X/DAY
     Route: 048
  14. DETROL LA [Suspect]
     Dosage: 4 MG, 1X/DAY (24 HR CAPSULE, TAKE 1 TABLET)
     Route: 048
  15. AMOXIL [Concomitant]
     Dosage: 500 MG, 3X/DAY
     Route: 048
  16. CALCIUM WITH VITAMIN D [Concomitant]
     Dosage: 500 MG, (1,250MG) - 200 UNIT PER TABLET, 2X/DAY (TAKE 1 TABLET BY MOUTH 2 TIMES DAILY WITH MEALS)
  17. IBUPROFEN (ADVIL) [Concomitant]
     Dosage: 800 MG, 4X/DAY (EVERY 6 HOURS AS NEEDED)
     Route: 048
  18. JANUMET [Concomitant]
     Dosage: 50-1,000 MG PER TABLET, 2X/DAY (2 TIMES DAILY WITH MEALS)
     Route: 048
  19. JANUVIA [Concomitant]
     Dosage: 100 MG, DAILY
     Route: 048
  20. KLOR-CON [Concomitant]
     Dosage: 10 MEQ, 2X/DAY
     Route: 048
  21. NEXIUM [Concomitant]
     Dosage: 40 MG, TAKE 1 CAPSULE BY MOUTH EVERY MORNING BEFORE BREAKFAST
     Route: 048

REACTIONS (12)
  - BLOOD CHOLESTEROL INCREASED [None]
  - ESSENTIAL HYPERTENSION [None]
  - VITAMIN D DEFICIENCY [None]
  - GASTROOESOPHAGEAL REFLUX DISEASE [None]
  - VITAMIN B12 DEFICIENCY [None]
  - TOBACCO USER [None]
  - DIABETES MELLITUS INADEQUATE CONTROL [None]
  - DEPRESSION [None]
  - TOOTH ABSCESS [None]
  - MIGRAINE WITH AURA [None]
  - HYPERTONIC BLADDER [None]
  - MUSCLE SPASMS [None]
